FAERS Safety Report 4869038-4 (Version None)
Quarter: 2005Q4

REPORT INFORMATION
  Report Type: 
  Country: None (occurrence: None)
  Receive Date: 20051223
  Receipt Date: 20051207
  Transmission Date: 20060501
  Serious: Yes (Other)
  Sender: FDA-Public Use
  Company Number: 2005EU002747

PATIENT
  Age: 50 Year
  Sex: Female

DRUGS (3)
  1. PROTOPIC [Suspect]
     Dosage: UNK, UNKNOWN/D, TOPICAL
     Route: 061
     Dates: start: 20030915
  2. TARGRETIN [Suspect]
     Indication: MYCOSIS FUNGOIDES
     Dosage: 300 MG/M2, UID/QD, ORAL
     Route: 048
     Dates: start: 20050321
  3. FENOFIBRATE [Suspect]
     Dosage: 160 MG, UID/QD, ORAL
     Route: 048
     Dates: start: 20050321

REACTIONS (11)
  - ARTHRALGIA [None]
  - ASTHENIA [None]
  - DERMATITIS EXFOLIATIVE [None]
  - DERMATOMYOSITIS [None]
  - FACE OEDEMA [None]
  - LYMPHADENOPATHY [None]
  - MUSCULAR WEAKNESS [None]
  - MYALGIA [None]
  - MYCOSIS FUNGOIDES [None]
  - PHOTOSENSITIVITY REACTION [None]
  - PRURITUS [None]
